FAERS Safety Report 4709247-8 (Version None)
Quarter: 2005Q3

REPORT INFORMATION
  Report Type: 
  Country: None (occurrence: None)
  Receive Date: 20050706
  Receipt Date: 20050628
  Transmission Date: 20060218
  Serious: Yes (Other)
  Sender: FDA-Public Use
  Company Number: CIP05001011

PATIENT
  Age: 64 Year
  Sex: Female

DRUGS (7)
  1. ACTONEL [Suspect]
     Indication: OSTEOPOROSIS
     Dosage: 35 MG ONCE WEEKLY, ORAL
     Route: 048
     Dates: start: 20021201
  2. GASTRO-STOP (LOPERAMIDE HYDROCHLORIDE) [Concomitant]
  3. EFFEXOR XR [Concomitant]
  4. LIPITOR [Concomitant]
  5. NEO-CYTAMEN (HYDROXOCOBALAMIN) [Concomitant]
  6. THYROXINE   APS  (LEVOTHYROXINE SODIUM) [Concomitant]
  7. SANDRENA (ESTRADIOL) [Concomitant]

REACTIONS (1)
  - TOOTH FRACTURE [None]
